FAERS Safety Report 9856868 (Version 6)
Quarter: 2014Q2

REPORT INFORMATION
  Report Type: Spontaneous
  Country: US (occurrence: US)
  Receive Date: 20140130
  Receipt Date: 20140613
  Transmission Date: 20141212
  Serious: Yes (Hospitalization, Disabling, Other)
  Sender: FDA-Public Use
  Company Number: US-009507513-1204USA02917

PATIENT
  Sex: Female
  Weight: 59.86 kg

DRUGS (4)
  1. FOSAMAX [Suspect]
     Indication: OSTEOPOROSIS
     Dosage: 10 MG, QD
     Route: 048
     Dates: start: 19970311, end: 20071119
  2. FOSAMAX [Suspect]
     Dosage: 10 MG, QD
     Route: 048
  3. FOSAMAX [Suspect]
     Dosage: 70 MG, QW
     Route: 048
     Dates: start: 20030424
  4. ALENDRONATE SODIUM [Suspect]
     Dosage: 70 MG, QW

REACTIONS (36)
  - Femur fracture [Recovered/Resolved]
  - Open reduction of fracture [Recovering/Resolving]
  - Femur fracture [Recovered/Resolved]
  - Open reduction of fracture [Recovered/Resolved]
  - Bone graft [Unknown]
  - Bone disorder [Unknown]
  - Knee arthroplasty [Unknown]
  - Medical device removal [Unknown]
  - Pneumothorax [Recovered/Resolved]
  - Tibia fracture [Unknown]
  - Dizziness [Unknown]
  - Escherichia urinary tract infection [Unknown]
  - Blood glucose abnormal [Unknown]
  - Fall [Unknown]
  - Anaemia postoperative [Unknown]
  - Hypercholesterolaemia [Unknown]
  - Essential hypertension [Unknown]
  - Oral herpes [Unknown]
  - Electrocardiogram abnormal [Unknown]
  - Central venous catheterisation [Unknown]
  - Skin abrasion [Unknown]
  - Haematocrit decreased [Unknown]
  - Chronic obstructive pulmonary disease [Not Recovered/Not Resolved]
  - Fall [Unknown]
  - Anxiety [Unknown]
  - Ventricular extrasystoles [Unknown]
  - Presyncope [Unknown]
  - Coronary artery disease [Unknown]
  - Appendicectomy [Unknown]
  - Vitamin B12 deficiency [Unknown]
  - Osteoarthritis [Unknown]
  - Patella fracture [Unknown]
  - Haemarthrosis [Unknown]
  - Meniscus injury [Unknown]
  - Synovial cyst [Unknown]
  - Ligament rupture [Unknown]
